FAERS Safety Report 10225678 (Version 1)
Quarter: 2014Q2

REPORT INFORMATION
  Report Type: Spontaneous
  Country: US (occurrence: US)
  Receive Date: 20140609
  Receipt Date: 20140609
  Transmission Date: 20141212
  Serious: No
  Sender: FDA-Public Use
  Company Number: US-ASTELLAS-2013US008512

PATIENT
  Sex: Male

DRUGS (3)
  1. PROGRAF [Suspect]
     Indication: LIVER TRANSPLANT
     Route: 048
     Dates: start: 2008, end: 2013
  2. PROGRAF [Suspect]
     Route: 048
     Dates: start: 2013
  3. NEXIUM                             /01479302/ [Concomitant]
     Indication: ULCER
     Route: 048
     Dates: start: 20080821

REACTIONS (1)
  - Dermatitis [Unknown]
